FAERS Safety Report 6272425-3 (Version None)
Quarter: 2009Q3

REPORT INFORMATION
  Report Type: 
  Country: None (occurrence: None)
  Receive Date: 20090717
  Receipt Date: 20090713
  Transmission Date: 20100115
  Serious: Yes (Hospitalization)
  Sender: FDA-Public Use
  Company Number: IT-MERCK-0907ITA00016

PATIENT
  Age: 54 Year
  Sex: Female

DRUGS (4)
  1. JANUVIA [Suspect]
     Indication: TYPE 2 DIABETES MELLITUS
     Route: 048
     Dates: start: 20081001, end: 20090707
  2. METFORMIN [Concomitant]
     Route: 065
     Dates: start: 20070116, end: 20090709
  3. ALLOPURINOL [Concomitant]
     Route: 048
     Dates: start: 20070116, end: 20090709
  4. IRBESARTAN [Concomitant]
     Route: 048
     Dates: start: 20070116, end: 20090709

REACTIONS (1)
  - AMAUROSIS [None]
